FAERS Safety Report 10922746 (Version 1)
Quarter: 2015Q1

REPORT INFORMATION
  Report Type: Spontaneous
  Country: US (occurrence: US)
  Receive Date: 20150317
  Receipt Date: 20150317
  Transmission Date: 20150721
  Serious: No
  Sender: FDA-Public Use
  Company Number: US-CELGENEUS-USA-2015022814

PATIENT
  Sex: Female

DRUGS (1)
  1. OTEZLA [Suspect]
     Active Substance: APREMILAST
     Indication: PSORIASIS
     Route: 048
     Dates: start: 20150123, end: 20150207

REACTIONS (5)
  - Chills [Unknown]
  - Mental disorder [Unknown]
  - Nausea [Unknown]
  - Sinusitis [Unknown]
  - Decreased appetite [Unknown]
